FAERS Safety Report 8832927 (Version 1)
Quarter: 2012Q4

REPORT INFORMATION
  Report Type: 
  Country: IT (occurrence: IT)
  Receive Date: 20121010
  Receipt Date: 20121010
  Transmission Date: 20130627
  Serious: Yes (Other)
  Sender: FDA-Public Use
  Company Number: PHHY2012IT088070

PATIENT
  Age: 42 Year
  Sex: Female

DRUGS (2)
  1. AMOXICILLIN [Suspect]
     Indication: PHARYNGITIS
     Dosage: 1 g, UNK
     Route: 048
     Dates: start: 20120621
  2. AMOXICILLIN [Suspect]
     Indication: PYREXIA

REACTIONS (2)
  - Eye oedema [Recovered/Resolved]
  - Lip oedema [Recovered/Resolved]
